FAERS Safety Report 21038690 (Version 12)
Quarter: 2023Q1

REPORT INFORMATION
  Report Type: Report from Study
  Country: US (occurrence: US)
  Receive Date: 20220704
  Receipt Date: 20230103
  Transmission Date: 20230418
  Serious: Yes (Hospitalization, Other)
  Sender: FDA-Public Use
  Company Number: US-HBP-2022US026789

PATIENT
  Sex: Female
  Weight: 102 kg

DRUGS (12)
  1. TRUSELTIQ [Suspect]
     Active Substance: INFIGRATINIB
     Indication: Cholangiocarcinoma
     Dosage: 125 MILLIGRAM, 21 DAYS ON AND 7 DAYS OFF
     Route: 048
     Dates: start: 20220518, end: 20220623
  2. TRUSELTIQ [Suspect]
     Active Substance: INFIGRATINIB
     Dosage: 100 MILLIGRAM, 21 DAYS ON AND 7 DAYS OFF
     Route: 048
     Dates: start: 20220623, end: 2022
  3. TRUSELTIQ [Suspect]
     Active Substance: INFIGRATINIB
     Dosage: 100 MILLIGRAM, DAILY FOR 21 DAYS
     Route: 048
     Dates: start: 202208, end: 20220914
  4. TRUSELTIQ [Suspect]
     Active Substance: INFIGRATINIB
     Dosage: 100 MILLIGRAM, EVERY OTHER DAY FOR 21 DAYS AND OFF 7
     Route: 048
     Dates: start: 20221001, end: 2022
  5. TRUSELTIQ [Suspect]
     Active Substance: INFIGRATINIB
     Dosage: 50 MILLIGRAM, DAILY FOR 21 DAYS
     Route: 048
     Dates: start: 2022
  6. TRUSELTIQ [Suspect]
     Active Substance: INFIGRATINIB
     Dosage: 50 MILLIGRAM, QOD
     Route: 048
     Dates: end: 202211
  7. OXYCODONE [Concomitant]
     Active Substance: OXYCODONE
     Dosage: UNK, UNKNOWN
     Dates: start: 20220606
  8. DIAZEPAM [Concomitant]
     Active Substance: DIAZEPAM
     Dosage: UNK, UNKNOWN
  9. CYCLOBENZAPRINE [Concomitant]
     Active Substance: CYCLOBENZAPRINE
     Dosage: UNK, UNKNOWN
     Dates: start: 20220606
  10. PROCHLORPERAZINE [Concomitant]
     Active Substance: PROCHLORPERAZINE
     Dosage: UNK, UNKNOWN
     Dates: start: 20220606
  11. DEXAMETHASONE [Concomitant]
     Active Substance: DEXAMETHASONE
     Dosage: UNK, UNKNOWN
     Dates: start: 20220606
  12. CHOLECALCIFEROL [Concomitant]
     Active Substance: CHOLECALCIFEROL
     Dosage: UNK, QD
     Dates: start: 20220804

REACTIONS (32)
  - Polyneuropathy [Recovered/Resolved]
  - Dehydration [Unknown]
  - Renal failure [Unknown]
  - Blindness [Unknown]
  - Cerebrovascular accident [Unknown]
  - Delirium [Unknown]
  - Hallucinations, mixed [Unknown]
  - Urinary tract infection [Unknown]
  - Troponin increased [Unknown]
  - Blood potassium decreased [Unknown]
  - Nausea [Unknown]
  - Neuralgia [Recovered/Resolved]
  - Renal function test abnormal [Unknown]
  - Ageusia [Not Recovered/Not Resolved]
  - Hypoaesthesia [Not Recovered/Not Resolved]
  - Hyperaesthesia [Not Recovered/Not Resolved]
  - Skin exfoliation [Not Recovered/Not Resolved]
  - Off label use [Unknown]
  - Therapy change [Unknown]
  - Thyroid function test abnormal [Recovered/Resolved]
  - Hyperthyroidism [Recovered/Resolved]
  - Urinary retention [Unknown]
  - Gait disturbance [Not Recovered/Not Resolved]
  - Gait inability [Recovered/Resolved]
  - Onycholysis [Not Recovered/Not Resolved]
  - Nail discolouration [Not Recovered/Not Resolved]
  - Pain in extremity [Recovered/Resolved]
  - Lacrimation increased [Unknown]
  - Vision blurred [Recovering/Resolving]
  - Dry eye [Not Recovered/Not Resolved]
  - Onychomadesis [Not Recovered/Not Resolved]
  - Palmar-plantar erythrodysaesthesia syndrome [Unknown]

NARRATIVE: CASE EVENT DATE: 20220101
